FAERS Safety Report 13722895 (Version 1)
Quarter: 2017Q3

REPORT INFORMATION
  Report Type: Spontaneous
  Country: US (occurrence: US)
  Receive Date: 20170706
  Receipt Date: 20170706
  Transmission Date: 20171127
  Serious: No
  Sender: FDA-Public Use
  Company Number: US-JNJFOC-20160602234

PATIENT
  Sex: Male

DRUGS (2)
  1. IMODIUM A-D [Suspect]
     Active Substance: LOPERAMIDE HYDROCHLORIDE
     Indication: DIARRHOEA
     Dosage: 2 CAPLETS THE FIRST DOSE AND THEN 1 CAPLET UPTO A TOTAL OF 4 CAPLETS.
     Route: 048
  2. IMODIUM A-D [Suspect]
     Active Substance: LOPERAMIDE HYDROCHLORIDE
     Indication: DIARRHOEA
     Dosage: 2 CAPLETS THE FIRST DOSE AND THEN 1 CAPLET AFTER THAT UP TO A TOTAL OF 5 CAPLETS
     Route: 048

REACTIONS (2)
  - Product label issue [Unknown]
  - Abdominal distension [Unknown]
